FAERS Safety Report 14539444 (Version 1)
Quarter: 2018Q1

REPORT INFORMATION
  Report Type: Spontaneous
  Country: FR (occurrence: FR)
  Receive Date: 20180216
  Receipt Date: 20180216
  Transmission Date: 20180509
  Serious: Yes (Other)
  Sender: FDA-Public Use
  Company Number: FR-BAYER-2018-025847

PATIENT
  Sex: Female
  Weight: 110 kg

DRUGS (2)
  1. MIRENA [Suspect]
     Active Substance: LEVONORGESTREL
     Indication: CONTRACEPTION
     Dosage: 20 MCG/24HR, CONT
     Route: 015
     Dates: start: 20030701, end: 20170715
  2. MIRENA [Suspect]
     Active Substance: LEVONORGESTREL
     Indication: CONTRACEPTION

REACTIONS (22)
  - Fatigue [Recovered/Resolved]
  - Weight increased [Not Recovered/Not Resolved]
  - Breast pain [Recovered/Resolved]
  - Diabetes mellitus [Not Recovered/Not Resolved]
  - Alopecia [Recovered/Resolved]
  - Seborrhoea [Not Recovered/Not Resolved]
  - Gingivitis [Recovered/Resolved]
  - Hirsutism [Recovered/Resolved]
  - Ovarian fibroma [Not Recovered/Not Resolved]
  - Eczema [Recovered/Resolved]
  - Depression [Recovered/Resolved]
  - Ovarian cyst [Not Recovered/Not Resolved]
  - Medical device site calcification [Not Recovered/Not Resolved]
  - Insomnia [Recovered/Resolved]
  - Thyroid mass [Not Recovered/Not Resolved]
  - Dyspepsia [Not Recovered/Not Resolved]
  - Hyperhidrosis [Recovered/Resolved]
  - Hypertension [Not Recovered/Not Resolved]
  - Libido decreased [Not Recovered/Not Resolved]
  - Gingival recession [Recovered/Resolved]
  - Peripheral swelling [Not Recovered/Not Resolved]
  - Tendonitis [Not Recovered/Not Resolved]

NARRATIVE: CASE EVENT DATE: 2007
